FAERS Safety Report 8086739-8 (Version None)
Quarter: 2012Q1

REPORT INFORMATION
  Report Type: 
  Country: None (occurrence: None)
  Receive Date: 20120128
  Receipt Date: 20110611
  Transmission Date: 20120608
  Serious: No
  Sender: FDA-Public Use
  Company Number: US-ABBOTT-11P-163-0732042-00

PATIENT
  Age: 39 Year
  Sex: Male
  Weight: 79.45 kg

DRUGS (5)
  1. HUMIRA [Suspect]
     Route: 058
     Dates: start: 20110324, end: 20110324
  2. HUMIRA [Suspect]
     Indication: CROHN'S DISEASE
     Route: 058
     Dates: start: 20110310, end: 20110310
  3. LOVAZA [Concomitant]
     Indication: BLOOD TRIGLYCERIDES INCREASED
  4. QUESTRAN [Concomitant]
     Indication: BLOOD CHOLESTEROL INCREASED
     Dosage: 1 PACKET
     Route: 048
  5. HUMIRA [Suspect]
     Route: 058
     Dates: start: 20110407

REACTIONS (5)
  - SENSATION OF FOREIGN BODY [None]
  - FATIGUE [None]
  - OROPHARYNGEAL PAIN [None]
  - SLEEP DISORDER [None]
  - CHONDROPATHY [None]
